FAERS Safety Report 6841854-9 (Version None)
Quarter: 2010Q3

REPORT INFORMATION
  Report Type: 
  Country: None (occurrence: None)
  Receive Date: 20100714
  Receipt Date: 20070716
  Transmission Date: 20110219
  Serious: No
  Sender: FDA-Public Use
  Company Number: US-PFIZER INC-2007060118

PATIENT
  Sex: Female
  Weight: 147.4 kg

DRUGS (10)
  1. CHANTIX [Suspect]
     Indication: SMOKING CESSATION THERAPY
     Dates: start: 20070514, end: 20070701
  2. ZOCOR [Concomitant]
  3. ALLEGRA [Concomitant]
  4. LOZOL [Concomitant]
  5. ATENOLOL [Concomitant]
  6. EFFEXOR [Concomitant]
  7. LORAZEPAM [Concomitant]
  8. AMBIEN [Concomitant]
  9. CORAL CALCIUM [Concomitant]
  10. IMDUR [Concomitant]

REACTIONS (1)
  - PRURITUS GENERALISED [None]
